FAERS Safety Report 13019716 (Version 2)
Quarter: 2017Q3

REPORT INFORMATION
  Report Type: Spontaneous
  Country: US (occurrence: US)
  Receive Date: 20161212
  Receipt Date: 20170814
  Transmission Date: 20171127
  Serious: No
  Sender: FDA-Public Use
  Company Number: US-ROCHE-1815688

PATIENT
  Age: 54 Year
  Sex: Female

DRUGS (2)
  1. ACTEMRA [Suspect]
     Active Substance: TOCILIZUMAB
     Indication: PRODUCT USED FOR UNKNOWN INDICATION
     Dosage: INJECT 162 MG SUBCUTANEOUSLY EVERY OTHER WEEK
     Route: 058
  2. TETANUS INJECTION [Concomitant]

REACTIONS (6)
  - Rash [Unknown]
  - Tongue dry [Unknown]
  - Pruritus generalised [Unknown]
  - Paraesthesia [Unknown]
  - Dry throat [Unknown]
  - Noninfective gingivitis [Unknown]

NARRATIVE: CASE EVENT DATE: 20161010
